FAERS Safety Report 5844616-4 (Version None)
Quarter: 2008Q3

REPORT INFORMATION
  Report Type: 
  Country: None (occurrence: None)
  Receive Date: 20080812
  Receipt Date: 20080728
  Transmission Date: 20090109
  Serious: Yes (Life-Threatening)
  Sender: FDA-Public Use
  Company Number: 2008PV000052

PATIENT
  Age: 64 Year
  Sex: Female

DRUGS (5)
  1. DEPOCYT [Suspect]
     Indication: CENTRAL NERVOUS SYSTEM LYMPHOMA
     Dosage: 50 MG; 1X; INTH
     Route: 037
     Dates: start: 20080603, end: 20080603
  2. IFOSFAMIDE [Suspect]
     Indication: LYMPHOMA
     Dosage: 800 MG/M**2; ; IV
     Route: 042
     Dates: start: 20080603, end: 20080605
  3. HOLOXAN [Concomitant]
  4. DEXAMETHASONE TAB [Concomitant]
  5. METHOTREXATE [Concomitant]

REACTIONS (8)
  - COMA [None]
  - DEPRESSED LEVEL OF CONSCIOUSNESS [None]
  - DISEASE PROGRESSION [None]
  - DRUG INTERACTION [None]
  - DYSPNOEA [None]
  - GENERAL PHYSICAL HEALTH DETERIORATION [None]
  - NEUROTOXICITY [None]
  - PYREXIA [None]
